FAERS Safety Report 7336703-9 (Version None)
Quarter: 2011Q1

REPORT INFORMATION
  Report Type: 
  Country: None (occurrence: None)
  Receive Date: 20110308
  Receipt Date: 20110301
  Transmission Date: 20110831
  Serious: Yes (Death, Hospitalization, Other)
  Sender: FDA-Public Use
  Company Number: NL-BIOGENIDEC-2010BI041471

PATIENT
  Age: 39 Year
  Sex: Female

DRUGS (6)
  1. EUTHYRAX [Concomitant]
  2. MINULET [Concomitant]
  3. HYDROCOBAMINE [Concomitant]
  4. AVONEX [Suspect]
     Indication: MULTIPLE SCLEROSIS
     Route: 030
     Dates: start: 20001004
  5. OMEPRAZOLE [Concomitant]
  6. FLIXONASE [Concomitant]

REACTIONS (2)
  - COLON CANCER METASTATIC [None]
  - STOMATITIS [None]
